FAERS Safety Report 25972468 (Version 1)
Quarter: 2025Q4

REPORT INFORMATION
  Report Type: Spontaneous
  Country: US (occurrence: None)
  Receive Date: 20251029
  Receipt Date: 20251029
  Transmission Date: 20260118
  Serious: No
  Sender: UCB
  Company Number: US-UCBSA-2025048576

PATIENT

DRUGS (1)
  1. BIMZELX [Suspect]
     Active Substance: BIMEKIZUMAB-BKZX
     Indication: Psoriasis
     Dosage: 320 MILLIGRAM, EV 4 WEEKS (FOR 16 WEEKS (WEEKS 4, 8, 12, AND 16) THEN 1 PEN EVERY 4 WEEKS THEREAFTER)

REACTIONS (2)
  - Psoriasis [Unknown]
  - Therapy interrupted [Unknown]
